FAERS Safety Report 20662202 (Version 1)
Quarter: 2022Q2

REPORT INFORMATION
  Report Type: Spontaneous
  Country: US (occurrence: US)
  Receive Date: 20220401
  Receipt Date: 20220401
  Transmission Date: 20220720
  Serious: No
  Sender: FDA-Public Use
  Company Number: US-ORGANON-O2203USA001051

PATIENT
  Sex: Male

DRUGS (1)
  1. FOSAMAX [Suspect]
     Active Substance: ALENDRONATE SODIUM
     Dosage: UNK

REACTIONS (1)
  - Herpes zoster [Unknown]

NARRATIVE: CASE EVENT DATE: 20090201
